FAERS Safety Report 26177540 (Version 1)
Quarter: 2025Q4

REPORT INFORMATION
  Report Type: Spontaneous
  Country: US (occurrence: US)
  Receive Date: 20251219
  Receipt Date: 20251219
  Transmission Date: 20260117
  Serious: No
  Sender: STRIDES
  Company Number: US-STRIDES ARCOLAB LIMITED-2025SP002929

PATIENT
  Age: 65 Year
  Sex: Male

DRUGS (8)
  1. HALOPERIDOL [Suspect]
     Active Substance: HALOPERIDOL
     Indication: Chorea
     Dosage: 3.5 MILLIGRAM (TOTAL DAILY DOSES )
     Route: 065
  2. HALOPERIDOL [Suspect]
     Active Substance: HALOPERIDOL
     Indication: Ballismus
  3. BACLOFEN [Suspect]
     Active Substance: BACLOFEN
     Indication: Chorea
     Dosage: 30 MILLIGRAM
     Route: 065
  4. BACLOFEN [Suspect]
     Active Substance: BACLOFEN
     Indication: Ballismus
  5. VALPROIC ACID [Suspect]
     Active Substance: VALPROIC ACID
     Indication: Chorea
     Dosage: 1500 MILLIGRAM
     Route: 065
  6. VALPROIC ACID [Suspect]
     Active Substance: VALPROIC ACID
     Indication: Ballismus
  7. RISPERIDONE [Suspect]
     Active Substance: RISPERIDONE
     Indication: Chorea
     Dosage: 1 MILLIGRAM
     Route: 065
  8. RISPERIDONE [Suspect]
     Active Substance: RISPERIDONE
     Indication: Ballismus

REACTIONS (2)
  - Sedation [Unknown]
  - Off label use [Unknown]
